FAERS Safety Report 11639566 (Version 1)
Quarter: 2015Q4

REPORT INFORMATION
  Report Type: Spontaneous
  Country: US (occurrence: None)
  Receive Date: 20151015
  Receipt Date: 20151015
  Transmission Date: 20160304
  Serious: Yes (Hospitalization)
  Sender: FDA-Public Use
  Company Number: RAP-0033-2014

PATIENT
  Age: 3 Year
  Sex: Female
  Weight: 11.8 kg

DRUGS (9)
  1. IRON (IRON) [Concomitant]
     Active Substance: IRON
  2. ONDANSETRON. [Concomitant]
     Active Substance: ONDANSETRON
  3. PROCYSBI DELAYED-RELEASE [Suspect]
     Active Substance: CYSTEAMINE BITARTRATE
     Indication: CYSTINOSIS
     Route: 048
     Dates: start: 201307
  4. VITAMIN D (ERGOCALCIFEROL) [Concomitant]
     Active Substance: ERGOCALCIFEROL
  5. POTASSIUM (POTASSIUM) [Suspect]
     Active Substance: POTASSIUM
     Indication: PRODUCT USED FOR UNKNOWN INDICATION
  6. INDOMETHACIN (INDOMETHACIN) [Concomitant]
     Active Substance: INDOMETHACIN
  7. CYTRA-K (CITRIC ACID, POTASSIUM) [Concomitant]
  8. FOSAMAX [Concomitant]
     Active Substance: ALENDRONATE SODIUM
  9. LEVOCARNITINE (LEVOCARNITINE) [Concomitant]

REACTIONS (6)
  - Pharyngitis streptococcal [None]
  - Dehydration [None]
  - Product use issue [None]
  - Ear infection [None]
  - Vomiting [None]
  - Drug dose omission [None]

NARRATIVE: CASE EVENT DATE: 201307
